FAERS Safety Report 6272385-5 (Version None)
Quarter: 2009Q3

REPORT INFORMATION
  Report Type: 
  Country: None (occurrence: None)
  Receive Date: 20090717
  Receipt Date: 20090708
  Transmission Date: 20100115
  Serious: Yes (Other)
  Sender: FDA-Public Use
  Company Number: CH-ASTRAZENECA-2009SE04359

PATIENT
  Age: 80 Year
  Sex: Male
  Weight: 61 kg

DRUGS (4)
  1. ZOLADEX [Suspect]
     Indication: PROSTATE CANCER
     Route: 058
  2. ZOMETA [Suspect]
     Indication: PROSTATE CANCER
     Route: 040
     Dates: start: 20040101
  3. FORTECORTIN [Suspect]
     Route: 048
  4. SINTROM [Concomitant]
     Route: 048

REACTIONS (1)
  - OSTEONECROSIS [None]
